FAERS Safety Report 17165669 (Version 1)
Quarter: 2019Q4

REPORT INFORMATION
  Report Type: Spontaneous
  Country: CN (occurrence: CN)
  Receive Date: 20191217
  Receipt Date: 20191217
  Transmission Date: 20200122
  Serious: Yes (Other)
  Sender: FDA-Public Use
  Company Number: CN-PFIZER INC-2019537421

PATIENT
  Age: 10 Year
  Sex: Female
  Weight: 45 kg

DRUGS (8)
  1. SODIUM CHLORIDE. [Suspect]
     Active Substance: SODIUM CHLORIDE
     Indication: VEHICLE SOLUTION USE
     Dosage: 450 ML, 1X/DAY
     Route: 041
     Dates: start: 20190624, end: 20190628
  2. SODIUM CHLORIDE. [Suspect]
     Active Substance: SODIUM CHLORIDE
     Dosage: 450 ML, 1X/DAY
     Route: 041
     Dates: start: 20190702, end: 20190704
  3. SODIUM CHLORIDE. [Suspect]
     Active Substance: SODIUM CHLORIDE
     Dosage: 100 ML, 2X/DAY
     Route: 041
     Dates: start: 20190627, end: 20190703
  4. SOLU-MEDROL [Suspect]
     Active Substance: METHYLPREDNISOLONE SODIUM SUCCINATE
     Dosage: 40 MG, 2X/DAY
     Route: 041
     Dates: start: 20190630, end: 20190701
  5. ZITHROMAX [Suspect]
     Active Substance: AZITHROMYCIN DIHYDRATE
     Indication: ANTI-INFECTIVE THERAPY
     Dosage: 450 MG, 1X/DAY
     Route: 041
     Dates: start: 20190624, end: 20190628
  6. SOLU-MEDROL [Suspect]
     Active Substance: METHYLPREDNISOLONE SODIUM SUCCINATE
     Indication: ANTIINFLAMMATORY THERAPY
     Dosage: 80 MG, 2X/DAY
     Route: 041
     Dates: start: 20190627, end: 20190629
  7. ZITHROMAX [Suspect]
     Active Substance: AZITHROMYCIN DIHYDRATE
     Dosage: 450 MG, 1X/DAY
     Route: 041
     Dates: start: 20190702, end: 20190704
  8. SOLU-MEDROL [Suspect]
     Active Substance: METHYLPREDNISOLONE SODIUM SUCCINATE
     Dosage: 20 MG, 2X/DAY
     Route: 041
     Dates: start: 20190702, end: 20190703

REACTIONS (1)
  - Sinoatrial block [Not Recovered/Not Resolved]

NARRATIVE: CASE EVENT DATE: 20190702
